FAERS Safety Report 24809949 (Version 1)
Quarter: 2025Q1

REPORT INFORMATION
  Report Type: Spontaneous
  Country: FI (occurrence: FI)
  Receive Date: 20250106
  Receipt Date: 20250106
  Transmission Date: 20250409
  Serious: Yes (Other)
  Sender: MYLAN
  Company Number: FI-MYLANLABS-2024M1118293

PATIENT
  Age: 37 Year
  Sex: Male

DRUGS (6)
  1. LYRICA [Suspect]
     Active Substance: PREGABALIN
     Indication: Neuralgia
     Dosage: UNK, QD (150-300 MG)
     Route: 065
     Dates: end: 20190511
  2. ABILIFY [Suspect]
     Active Substance: ARIPIPRAZOLE
     Indication: Neuralgia
     Dosage: 400 MILLIGRAM, Q3W
     Route: 065
  3. DIAZEPAM [Concomitant]
     Active Substance: DIAZEPAM
     Route: 065
  4. GABAPENTIN [Concomitant]
     Active Substance: GABAPENTIN
     Route: 065
  5. DEXTROAMPHETAMINE SULFATE [Concomitant]
     Active Substance: DEXTROAMPHETAMINE SULFATE
     Route: 065
  6. CANNABIS SATIVA SUBSP. INDICA TOP [Concomitant]
     Active Substance: CANNABIS SATIVA SUBSP. INDICA TOP
     Route: 065

REACTIONS (8)
  - Drug dependence [Unknown]
  - Therapy cessation [Unknown]
  - Therapeutic response unexpected [Unknown]
  - Crime [Unknown]
  - Fluid retention [Unknown]
  - Electric shock sensation [Unknown]
  - Neuralgia [Unknown]
  - Affective disorder [Unknown]

NARRATIVE: CASE EVENT DATE: 20190101
